FAERS Safety Report 13943742 (Version 1)
Quarter: 2017Q3

REPORT INFORMATION
  Report Type: Spontaneous
  Country: CN (occurrence: CN)
  Receive Date: 20170907
  Receipt Date: 20170907
  Transmission Date: 20171128
  Serious: Yes (Other)
  Sender: FDA-Public Use
  Company Number: CN-ROCHE-1987704

PATIENT
  Age: 43 Year
  Sex: Male
  Weight: 73 kg

DRUGS (2)
  1. XELODA [Suspect]
     Active Substance: CAPECITABINE
     Indication: RECTAL CANCER
     Dosage: 150 MG IN THE MORNING AND 200 MG IN THE EVENING
     Route: 048
     Dates: start: 20170612, end: 20170621
  2. OXALIPLATIN. [Suspect]
     Active Substance: OXALIPLATIN
     Indication: RECTAL CANCER
     Route: 041
     Dates: start: 20170613, end: 20170613

REACTIONS (2)
  - Bone marrow failure [Recovering/Resolving]
  - Hepatic function abnormal [Recovering/Resolving]

NARRATIVE: CASE EVENT DATE: 20170613
